FAERS Safety Report 8361774 (Version 3)
Quarter: 2014Q2

REPORT INFORMATION
  Report Type: Spontaneous
  Country: US (occurrence: US)
  Receive Date: 20120130
  Receipt Date: 20131018
  Transmission Date: 20141212
  Serious: Yes (Hospitalization)
  Sender: FDA-Public Use
  Company Number: US-PFIZER INC-2012012804

PATIENT
  Sex: Male
  Weight: 2.4 kg

DRUGS (20)
  1. LIDOCAINE HCL [Suspect]
     Dosage: 2 DOSES 1MG/KG
  2. LIDOCAINE HCL [Interacting]
     Dosage: 10 UG/KG/MIN
  3. LIDOCAINE HCL [Interacting]
     Dosage: 40 UG/KG/MIN
  4. LIDOCAINE HCL [Interacting]
     Dosage: 2 BOLUSES OF 1 MG/KG
     Route: 040
  5. LIDOCAINE HCL [Interacting]
     Dosage: 50 UG/KG/MIN
  6. LIDOCAINE HCL [Interacting]
     Dosage: 1 MG/KG
     Route: 040
  7. PHENYTOIN [Interacting]
     Dosage: 8 MG/KG
     Route: 040
  8. PHENYTOIN [Interacting]
     Dosage: 5 MG/KG
     Route: 040
  9. AMIODARONE HCL [Interacting]
     Dosage: 1 MG/KG/DOSE
     Route: 040
  10. AMIODARONE HCL [Interacting]
     Dosage: 11 DOSES AT 3 MG/DOSE
  11. AMIODARONE HCL [Interacting]
     Dosage: 3 BOLUSES OF 1 MG/KG
     Route: 040
  12. ESMOLOL [Concomitant]
     Dosage: 66 UG/KG/MIN
  13. ESMOLOL [Concomitant]
     Dosage: 30 UG/KG/MIN
  14. ESMOLOL [Concomitant]
     Dosage: 200 UG/KG/MIN
  15. ESMOLOL [Concomitant]
     Dosage: 250 UG/KG/MIN
  16. ESMOLOL [Concomitant]
     Dosage: 500 UG/KG/MIN
  17. MAGNESIUM [Concomitant]
     Dosage: 25 MG/KG PER DOSE
  18. CALCIUM [Concomitant]
     Dosage: 10 MG/KG PER DOSE
  19. POTASSIUM [Concomitant]
     Dosage: 1 MEQ/KG PER DOSE
  20. MILRINONE [Concomitant]
     Dosage: 0.2 UG/KG/MIN

REACTIONS (3)
  - Drug interaction [Recovered/Resolved]
  - Toxicity to various agents [Recovered/Resolved]
  - Neurotoxicity [Recovered/Resolved]
